FAERS Safety Report 11730227 (Version 3)
Quarter: 2016Q1

REPORT INFORMATION
  Report Type: Spontaneous
  Country: US (occurrence: US)
  Receive Date: 20151112
  Receipt Date: 20160203
  Transmission Date: 20160525
  Serious: No
  Sender: FDA-Public Use
  Company Number: US-GLAXOSMITHKLINE-US2015GSK161250

PATIENT
  Sex: Female

DRUGS (2)
  1. TANZEUM [Suspect]
     Active Substance: ALBIGLUTIDE
     Indication: WEIGHT CONTROL
  2. TANZEUM [Suspect]
     Active Substance: ALBIGLUTIDE
     Indication: GLUCOSE TOLERANCE IMPAIRED
     Dosage: 50 MG, WE
     Dates: start: 201510

REACTIONS (7)
  - Accidental exposure to product [Unknown]
  - Device use error [Unknown]
  - Product quality issue [Unknown]
  - Device leakage [Unknown]
  - Device difficult to use [Unknown]
  - Off label use [Not Recovered/Not Resolved]
  - Underdose [Unknown]
